FAERS Safety Report 8344597-8 (Version None)
Quarter: 2012Q2

REPORT INFORMATION
  Report Type: 
  Country: None (occurrence: None)
  Receive Date: 20120508
  Receipt Date: 20120430
  Transmission Date: 20120825
  Serious: Yes (Other)
  Sender: FDA-Public Use
  Company Number: PHHY2012FR015521

PATIENT
  Age: 30 Year
  Sex: Female

DRUGS (1)
  1. OSLIF BREEZHALER [Suspect]
     Indication: COUGH
     Dates: start: 20120202, end: 20120220

REACTIONS (3)
  - ABORTION SPONTANEOUS [None]
  - ABDOMINAL PAIN LOWER [None]
  - MATERNAL EXPOSURE DURING PREGNANCY [None]
